FAERS Safety Report 24935165 (Version 1)
Quarter: 2025Q1

REPORT INFORMATION
  Report Type: Spontaneous
  Country: US (occurrence: None)
  Receive Date: 20250205
  Receipt Date: 20250205
  Transmission Date: 20250408
  Serious: Yes (Disabling)
  Sender: FDA-CTU
  Company Number: None

PATIENT
  Age: 27 Year
  Sex: Male
  Weight: 81.65 kg

DRUGS (3)
  1. SERTRALINE [Suspect]
     Active Substance: SERTRALINE HYDROCHLORIDE
     Indication: Anxiety
     Dosage: FREQUENCY : DAILY;?
     Route: 048
     Dates: start: 20170801, end: 20180601
  2. QUETIAPINE [Concomitant]
     Active Substance: QUETIAPINE
  3. PROPRANOLOL [Concomitant]
     Active Substance: PROPRANOLOL HYDROCHLORIDE

REACTIONS (10)
  - Sexual dysfunction [None]
  - Loss of libido [None]
  - Erectile dysfunction [None]
  - Ejaculation delayed [None]
  - Anorgasmia [None]
  - Dyspareunia [None]
  - Genital hypoaesthesia [None]
  - Penile pain [None]
  - Genital hypoaesthesia [None]
  - Penile discomfort [None]

NARRATIVE: CASE EVENT DATE: 20170801
